FAERS Safety Report 5252017-5 (Version None)
Quarter: 2007Q1

REPORT INFORMATION
  Report Type: 
  Country: None (occurrence: None)
  Receive Date: 20070223
  Receipt Date: 20070215
  Transmission Date: 20070707
  Serious: Yes (Other)
  Sender: FDA-Public Use
  Company Number: 2007SP003038

PATIENT
  Age: 57 Year
  Sex: Male
  Weight: 92.9874 kg

DRUGS (2)
  1. PEG-INTRON [Suspect]
     Indication: HEPATITIS C
     Dosage: SC
     Route: 058
     Dates: start: 20061215
  2. REBETOL [Suspect]
     Indication: HEPATITIS C
     Dosage: PO
     Route: 048
     Dates: start: 20061215

REACTIONS (10)
  - ANOREXIA [None]
  - CHILLS [None]
  - DEHYDRATION [None]
  - DELIRIUM [None]
  - FATIGUE [None]
  - HYPERHIDROSIS [None]
  - MEMORY IMPAIRMENT [None]
  - VERTIGO [None]
  - VOMITING [None]
  - WEIGHT DECREASED [None]
